FAERS Safety Report 10238693 (Version 1)
Quarter: 2014Q2

REPORT INFORMATION
  Report Type: Spontaneous
  Country: US (occurrence: None)
  Receive Date: 20140613
  Receipt Date: 20140613
  Transmission Date: 20141212
  Serious: Yes (Other)
  Sender: FDA-Public Use
  Company Number: None

PATIENT
  Age: 31 Year
  Sex: Female
  Weight: 117.94 kg

DRUGS (4)
  1. LAMOTRIGINE [Suspect]
     Indication: BIPOLAR DISORDER
     Route: 048
     Dates: start: 20110319, end: 20110509
  2. PRISTIQ [Concomitant]
  3. LUNESTA [Concomitant]
  4. CLONAZEPAM [Concomitant]

REACTIONS (8)
  - Abdominal pain upper [None]
  - Myalgia [None]
  - Headache [None]
  - Nightmare [None]
  - Insomnia [None]
  - Hyperhidrosis [None]
  - Malaise [None]
  - Impaired work ability [None]
